FAERS Safety Report 8180967-9 (Version None)
Quarter: 2012Q1

REPORT INFORMATION
  Report Type: 
  Country: None (occurrence: None)
  Receive Date: 20120302
  Receipt Date: 20120225
  Transmission Date: 20120608
  Serious: No
  Sender: FDA-Public Use
  Company Number: US-BAYER-2012-020520

PATIENT

DRUGS (2)
  1. ALEVE (CAPLET) [Suspect]
     Dosage: DAILY DOSE 4 DF
     Route: 048
     Dates: start: 20120225
  2. ALEVE (CAPLET) [Suspect]
     Dosage: DAILY DOSE 8 DF
     Route: 048
     Dates: start: 20120225

REACTIONS (1)
  - NO ADVERSE EVENT [None]
